FAERS Safety Report 25225627 (Version 4)
Quarter: 2025Q2

REPORT INFORMATION
  Report Type: Spontaneous
  Country: US (occurrence: US)
  Receive Date: 20250422
  Receipt Date: 20250508
  Transmission Date: 20250717
  Serious: Yes (Hospitalization, Other)
  Sender: PFIZER
  Company Number: US-PFIZER INC-PV202500046880

PATIENT
  Age: 75 Year
  Sex: Male

DRUGS (1)
  1. SULFAMETHOXAZOLE\TRIMETHOPRIM [Suspect]
     Active Substance: SULFAMETHOXAZOLE\TRIMETHOPRIM
     Indication: Urinary tract infection

REACTIONS (9)
  - Necrotising oesophagitis [Recovering/Resolving]
  - Nephropathy toxic [Unknown]
  - Impaired gastric emptying [Unknown]
  - Duodenitis [Unknown]
  - Ileus [Unknown]
  - Leukocytosis [Unknown]
  - Duodenal ulcer [Unknown]
  - Nausea [Recovering/Resolving]
  - Vomiting [Recovering/Resolving]
